FAERS Safety Report 23017547 (Version 1)
Quarter: 2023Q4

REPORT INFORMATION
  Report Type: Spontaneous
  Country: US (occurrence: US)
  Receive Date: 20231003
  Receipt Date: 20231003
  Transmission Date: 20240109
  Serious: Yes (Hospitalization)
  Sender: FDA-Public Use
  Company Number: US-PROCTER+GAMBLE-PH23008698

PATIENT
  Age: 15 Year
  Sex: Female
  Weight: 47 kg

DRUGS (1)
  1. DIPHENHYDRAMINE HYDROCHLORIDE [Suspect]
     Active Substance: DIPHENHYDRAMINE HYDROCHLORIDE
     Dosage: 2.5 GRAM, EVENING
     Route: 065

REACTIONS (9)
  - Delirium [Recovered/Resolved]
  - Anticholinergic syndrome [Recovered/Resolved]
  - Sinus tachycardia [Unknown]
  - Electrocardiogram QT prolonged [Unknown]
  - Urinary retention [Recovered/Resolved]
  - Agitation [Unknown]
  - Drug screen positive [Unknown]
  - Intentional overdose [Unknown]
  - Intentional product use issue [Unknown]
